FAERS Safety Report 13819442 (Version 1)
Quarter: 2017Q3

REPORT INFORMATION
  Report Type: Report from Study
  Country: US (occurrence: US)
  Receive Date: 20170731
  Receipt Date: 20170731
  Transmission Date: 20171127
  Serious: Yes (Hospitalization)
  Sender: FDA-Public Use
  Company Number: US-IPSEN-CABO-16007563

PATIENT
  Age: 58 Year
  Sex: Female

DRUGS (16)
  1. FLEXERIL [Concomitant]
     Active Substance: CYCLOBENZAPRINE HYDROCHLORIDE
  2. VITAMIN C [Concomitant]
     Active Substance: ASCORBIC ACID
  3. DOCUSATE CALCIUM. [Concomitant]
     Active Substance: DOCUSATE CALCIUM
  4. GABAPENTIN. [Concomitant]
     Active Substance: GABAPENTIN
  5. FOLIC ACID. [Concomitant]
     Active Substance: FOLIC ACID
  6. LORAZEPAM. [Concomitant]
     Active Substance: LORAZEPAM
  7. CABOMETYX [Suspect]
     Active Substance: CABOZANTINIB S-MALATE
     Indication: RENAL CANCER
     Dosage: 40 MG, QD
     Route: 048
     Dates: start: 20161014, end: 2016
  8. MIRALAX [Concomitant]
     Active Substance: POLYETHYLENE GLYCOL 3350
  9. SENNA [Concomitant]
     Active Substance: SENNA LEAF\SENNOSIDES\SENNOSIDES A AND B
  10. SIMETHICONE (DIMETHICONE) [Concomitant]
     Active Substance: DIMETHICONE
  11. AMLODIPINE [Concomitant]
     Active Substance: AMLODIPINE BESYLATE
  12. MORPHINE SULFATE. [Concomitant]
     Active Substance: MORPHINE SULFATE
  13. CABOMETYX [Suspect]
     Active Substance: CABOZANTINIB S-MALATE
     Dosage: 20 MG, QD
     Route: 048
     Dates: start: 20161223, end: 2017
  14. CABOMETYX [Suspect]
     Active Substance: CABOZANTINIB S-MALATE
     Dosage: 20 MG, QD
     Route: 048
     Dates: start: 20170218
  15. BIOTIN [Concomitant]
     Active Substance: BIOTIN
  16. LACTULOSE. [Concomitant]
     Active Substance: LACTULOSE

REACTIONS (8)
  - Muscle spasms [Unknown]
  - Diarrhoea [Recovering/Resolving]
  - Glossodynia [Unknown]
  - Iodine allergy [Unknown]
  - Stomatitis [Unknown]
  - Malaise [Unknown]
  - Nausea [Recovering/Resolving]
  - Nasopharyngitis [Unknown]

NARRATIVE: CASE EVENT DATE: 20161217
